FAERS Safety Report 6042241-6 (Version None)
Quarter: 2009Q1

REPORT INFORMATION
  Report Type: 
  Country: None (occurrence: None)
  Receive Date: 20090116
  Receipt Date: 20090105
  Transmission Date: 20090719
  Serious: Yes (Death, Hospitalization, Other)
  Sender: FDA-Public Use
  Company Number: US-PFIZER INC-2008038973

PATIENT
  Sex: Female

DRUGS (16)
  1. SOLU-MEDROL [Suspect]
     Indication: MULTIPLE SCLEROSIS
  2. IBUPROFEN [Suspect]
  3. BETASERON [Suspect]
     Indication: SECONDARY PROGRESSIVE MULTIPLE SCLEROSIS
     Route: 058
     Dates: start: 20070720, end: 20080701
  4. TYLENOL (CAPLET) [Concomitant]
     Indication: PREMEDICATION
     Dosage: 1 DF
  5. TYLENOL (CAPLET) [Concomitant]
     Indication: INFLUENZA LIKE ILLNESS
  6. ANTIHYPERTENSIVES [Concomitant]
  7. MAGNESIUM SULFATE [Concomitant]
  8. BACLOFEN [Concomitant]
  9. PREDNISONE [Concomitant]
  10. AMANTADINE HCL [Concomitant]
  11. ACETYLSALICYLIC ACID SRT [Concomitant]
  12. ULTRAM [Concomitant]
  13. XANAX [Concomitant]
  14. AMITIZA [Concomitant]
  15. ACIPHEX [Concomitant]
  16. POTASSIUM CHLORIDE [Concomitant]
     Dosage: 6 DF
     Dates: start: 20070501

REACTIONS (7)
  - DEATH [None]
  - DEHYDRATION [None]
  - DUODENAL ULCER [None]
  - DYSARTHRIA [None]
  - PNEUMONIA [None]
  - THYROID NEOPLASM [None]
  - WEIGHT DECREASED [None]
